FAERS Safety Report 18812374 (Version 1)
Quarter: 2021Q1

REPORT INFORMATION
  Report Type: Spontaneous
  Country: RU (occurrence: RU)
  Receive Date: 20210130
  Receipt Date: 20210130
  Transmission Date: 20210419
  Serious: Yes (Death)
  Sender: FDA-Public Use
  Company Number: RU-009507513-2101RUS012246

PATIENT
  Age: 62 Year
  Sex: Female

DRUGS (4)
  1. DIPROSPAN [Suspect]
     Active Substance: BETAMETHASONE DIPROPIONATE\BETAMETHASONE SODIUM PHOSPHATE
     Indication: OSTEOARTHRITIS
     Dosage: 1 ML
     Dates: start: 20191017, end: 20191017
  2. ULTRACAINE DS [Suspect]
     Active Substance: ARTICAINE HYDROCHLORIDE\EPINEPHRINE HYDROCHLORIDE
     Indication: OSTEOARTHRITIS
     Dosage: 1 ML, PARAARTICULAR
     Dates: start: 20191017, end: 20191017
  3. LIDOCAINE. [Suspect]
     Active Substance: LIDOCAINE
     Indication: OSTEOARTHRITIS
     Dosage: 1 ML
     Dates: start: 20191017, end: 20191017
  4. GLIATILIN [Concomitant]
     Active Substance: CHOLINE ALFOSCERATE
     Indication: CEREBRAL ISCHAEMIA
     Dates: end: 20191017

REACTIONS (3)
  - Asthenia [Fatal]
  - Loss of consciousness [Fatal]
  - Visual impairment [Fatal]

NARRATIVE: CASE EVENT DATE: 20191017
